FAERS Safety Report 25264461 (Version 1)
Quarter: 2025Q2

REPORT INFORMATION
  Report Type: Spontaneous
  Country: US (occurrence: US)
  Receive Date: 20250502
  Receipt Date: 20250502
  Transmission Date: 20250716
  Serious: Yes (Other)
  Sender: JOHNSON AND JOHNSON
  Company Number: US-JNJFOC-20250441026

PATIENT
  Sex: Female

DRUGS (1)
  1. CARVYKTI [Suspect]
     Active Substance: CILTACABTAGENE AUTOLEUCEL
     Indication: Plasma cell myeloma
     Dates: start: 20250320

REACTIONS (2)
  - Haemophagocytic lymphohistiocytosis [Recovered/Resolved with Sequelae]
  - Cytokine release syndrome [Unknown]

NARRATIVE: CASE EVENT DATE: 20250327
